FAERS Safety Report 23284675 (Version 1)
Quarter: 2023Q4

REPORT INFORMATION
  Report Type: Spontaneous
  Country: AU (occurrence: AU)
  Receive Date: 20231211
  Receipt Date: 20231211
  Transmission Date: 20240109
  Serious: Yes (Other)
  Sender: FDA-Public Use
  Company Number: AU-AMNEAL PHARMACEUTICALS-2023-AMRX-04283

PATIENT
  Age: 20 Year
  Sex: Female

DRUGS (2)
  1. NORETHINDRONE ACETATE [Suspect]
     Active Substance: NORETHINDRONE ACETATE
     Indication: Heavy menstrual bleeding
     Dosage: 10 MILLIGRAM, DAILY
     Route: 065
  2. ETHINYL ESTRADIOL\LEVONORGESTREL [Suspect]
     Active Substance: ETHINYL ESTRADIOL\LEVONORGESTREL
     Indication: Heavy menstrual bleeding
     Dosage: UNK
     Route: 065

REACTIONS (2)
  - Hepatic adenoma [Recovered/Resolved]
  - Haemorrhage [Recovered/Resolved]
